FAERS Safety Report 7540427-2 (Version None)
Quarter: 2011Q2

REPORT INFORMATION
  Report Type: 
  Country: None (occurrence: None)
  Receive Date: 20110603
  Receipt Date: 20110526
  Transmission Date: 20111010
  Serious: Yes (Hospitalization)
  Sender: FDA-Public Use
  Company Number: TRP_07756_2011

PATIENT
  Sex: Female
  Weight: 79.3795 kg

DRUGS (21)
  1. RIBAVIRIN [Suspect]
     Indication: HEPATITIS C
     Dosage: 600 MG BID ORAL, 600 MG, 800 MG
     Route: 048
     Dates: start: 20100617, end: 20100701
  2. RIBAVIRIN [Suspect]
     Indication: HEPATITIS C
     Dosage: 600 MG BID ORAL, 600 MG, 800 MG
     Route: 048
     Dates: start: 20100702, end: 20100716
  3. RIBAVIRIN [Suspect]
     Indication: HEPATITIS C
     Dosage: 600 MG BID ORAL, 600 MG, 800 MG
     Route: 048
     Dates: start: 20100717, end: 20101216
  4. HYDROCHLOROTHIAZIDE [Concomitant]
  5. ZOLPIDEM TARTRATE [Concomitant]
  6. BYSTOLIC [Concomitant]
  7. LISINOPRIL [Concomitant]
  8. SERTRALINE HYDROCHLORIDE [Concomitant]
  9. ACETAMINOPHEN W/ PROPOXYPHENE HCL [Concomitant]
  10. GENTEAL /06684801/ [Concomitant]
  11. EPOETIN ALFA [Concomitant]
  12. PEGINTERFERON ALFA-2A [Suspect]
     Indication: HEPATITIS C
     Dosage: 180 ?G 1X/WEEK SUBCUTANEOUS; 90 ?G 1X/WEEK SUBCUTANEOUS
     Route: 058
     Dates: start: 20110102, end: 20110102
  13. PEGINTERFERON ALFA-2A [Suspect]
     Indication: HEPATITIS C
     Dosage: 180 ?G 1X/WEEK SUBCUTANEOUS; 90 ?G 1X/WEEK SUBCUTANEOUS
     Route: 058
     Dates: start: 20100617, end: 20101210
  14. LOPERAMIDE HYDROCHLORIDE [Concomitant]
  15. LEVOTHYROXINE SODIUM [Concomitant]
  16. MILK THISTLE [Concomitant]
  17. HYDROCORTISONE ACETATE [Concomitant]
  18. ALPRAZOLAM [Concomitant]
  19. ABT-072 (BLINDED) [Suspect]
     Indication: HEPATITIS C
     Dosage: ORAL
     Route: 048
     Dates: start: 20100614, end: 20100826
  20. ABT-072 (BLINDED) [Suspect]
     Indication: HEPATITIS C
     Dosage: ORAL
     Route: 048
     Dates: start: 20100831, end: 20100906
  21. VICODIN [Concomitant]

REACTIONS (9)
  - COUGH [None]
  - URINARY TRACT INFECTION [None]
  - RENAL CYST [None]
  - DYSPNOEA [None]
  - ABDOMINAL PAIN [None]
  - PNEUMONIA [None]
  - HAEMOLYTIC ANAEMIA [None]
  - CHEST DISCOMFORT [None]
  - HEPATIC CYST [None]
